FAERS Safety Report 16762015 (Version 1)
Quarter: 2019Q3

REPORT INFORMATION
  Report Type: Report from Study
  Country: US (occurrence: US)
  Receive Date: 20190830
  Receipt Date: 20190830
  Transmission Date: 20191005
  Serious: Yes (Other)
  Sender: FDA-Public Use
  Company Number: US-TAKEDA-2018TUS036059

PATIENT
  Sex: Female

DRUGS (1)
  1. PONATINIB [Suspect]
     Active Substance: PONATINIB
     Indication: ACUTE LYMPHOCYTIC LEUKAEMIA (IN REMISSION)
     Dosage: 45 MILLIGRAM, QD
     Route: 048
     Dates: start: 20181201

REACTIONS (15)
  - Adnexa uteri pain [Unknown]
  - Bone pain [Unknown]
  - Abdominal discomfort [Unknown]
  - Infection [Unknown]
  - Kidney infection [Unknown]
  - Decreased appetite [Unknown]
  - Neuropathy peripheral [Unknown]
  - Psoriasis [Unknown]
  - Urinary tract infection [Unknown]
  - Skin wrinkling [Recovered/Resolved]
  - Rash [Unknown]
  - Fracture pain [Unknown]
  - Skin hyperpigmentation [Unknown]
  - Abdominal pain upper [Unknown]
  - Osteoporosis [Unknown]
